FAERS Safety Report 22334337 (Version 1)
Quarter: 2023Q2

REPORT INFORMATION
  Report Type: Spontaneous
  Country: JP (occurrence: JP)
  Receive Date: 20230517
  Receipt Date: 20230517
  Transmission Date: 20230722
  Serious: Yes (Other)
  Sender: FDA-Public Use
  Company Number: JP-002147023-NVSJ2023JP007887

PATIENT
  Age: 69 Year
  Sex: Male

DRUGS (9)
  1. CLOFAZIMINE [Suspect]
     Active Substance: CLOFAZIMINE
     Indication: Atypical mycobacterial infection
     Dosage: 100 MG
     Route: 048
     Dates: start: 20211026, end: 20211129
  2. CLOFAZIMINE [Suspect]
     Active Substance: CLOFAZIMINE
     Dosage: 100 MG
     Route: 048
     Dates: start: 20220302, end: 20220308
  3. LYRICA [Concomitant]
     Active Substance: PREGABALIN
     Indication: Product used for unknown indication
     Dosage: UNK
     Route: 065
  4. DULOXETINE HYDROCHLORIDE [Concomitant]
     Active Substance: DULOXETINE HYDROCHLORIDE
     Indication: Product used for unknown indication
     Dosage: UNK
     Route: 065
  5. CLARITHROMYCIN [Concomitant]
     Active Substance: CLARITHROMYCIN
     Indication: Product used for unknown indication
     Dosage: UNK
     Route: 065
  6. SITAFLOXACIN [Concomitant]
     Active Substance: SITAFLOXACIN
     Indication: Product used for unknown indication
     Dosage: UNK
     Route: 065
  7. HERBALS [Concomitant]
     Active Substance: HERBALS
     Indication: Product used for unknown indication
     Dosage: UNK
     Route: 065
  8. CALONAL [Concomitant]
     Active Substance: ACETAMINOPHEN
     Indication: Product used for unknown indication
     Dosage: UNK
     Route: 065
  9. HUSCODE [Concomitant]
     Active Substance: CHLORPHENIRAMINE MALEATE\DIHYDROCODEINE PHOSPHATE\METHYLEPHEDRINE HYDROCHLORIDE, DL-
     Indication: Product used for unknown indication
     Dosage: UNK
     Route: 048

REACTIONS (9)
  - Atypical mycobacterial infection [Unknown]
  - Condition aggravated [Unknown]
  - Hypoaesthesia oral [Recovered/Resolved]
  - Hypoaesthesia oral [Recovering/Resolving]
  - Taste disorder [Recovered/Resolved]
  - Taste disorder [Recovering/Resolving]
  - Spinal stenosis [Recovered/Resolved]
  - Spinal stenosis [Recovering/Resolving]
  - Off label use [Unknown]

NARRATIVE: CASE EVENT DATE: 20211101
